FAERS Safety Report 20825716 (Version 1)
Quarter: 2022Q2

REPORT INFORMATION
  Report Type: Spontaneous
  Country: US (occurrence: US)
  Receive Date: 20220513
  Receipt Date: 20220513
  Transmission Date: 20220721
  Serious: No
  Sender: FDA-Public Use
  Company Number: US-TEVA-2022-US-2030944

PATIENT
  Age: 66 Year
  Sex: Female

DRUGS (1)
  1. MICONAZOLE [Suspect]
     Active Substance: MICONAZOLE
     Indication: Fungal infection
     Dosage: 3 DAY REGIME
     Route: 067
     Dates: end: 202204

REACTIONS (3)
  - Application site pruritus [Unknown]
  - Application site pain [Unknown]
  - Product colour issue [Unknown]

NARRATIVE: CASE EVENT DATE: 20220414
